FAERS Safety Report 8016502-5 (Version None)
Quarter: 2011Q4

REPORT INFORMATION
  Report Type: 
  Country: None (occurrence: None)
  Receive Date: 20111230
  Receipt Date: 20111227
  Transmission Date: 20120403
  Serious: Yes (Death, Life-Threatening, Hospitalization)
  Sender: FDA-Public Use
  Company Number: JP-GENZYME-THYM-1001921

PATIENT
  Age: 6 Year
  Sex: Female
  Weight: 15 kg

DRUGS (16)
  1. THYMOGLOBULIN [Suspect]
     Indication: NEOPLASM PROPHYLAXIS
     Dosage: 37.5 MG, QD
     Route: 042
     Dates: start: 20100903, end: 20100906
  2. PANIPENEM [Concomitant]
     Indication: INFECTION PROPHYLAXIS
     Dosage: UNK
     Dates: start: 20100811, end: 20100830
  3. THYMOGLOBULIN [Suspect]
     Dosage: 70 MG, QD
     Route: 042
     Dates: start: 20100913, end: 20100913
  4. MELPHALAN HYDROCHLORIDE [Concomitant]
     Indication: BONE MARROW CONDITIONING REGIMEN
     Dosage: UNK
     Dates: start: 20100805, end: 20100806
  5. MICAFUNGIN SODIUM [Concomitant]
     Indication: INFECTION PROPHYLAXIS
     Dosage: UNK
     Dates: start: 20100811, end: 20101108
  6. FLUDARABINE PHOSPHATE [Concomitant]
     Indication: BONE MARROW CONDITIONING REGIMEN
     Dosage: UNK
     Dates: start: 20100901, end: 20100904
  7. CYCLOPHOSPHAMIDE [Concomitant]
     Indication: BONE MARROW CONDITIONING REGIMEN
     Dosage: UNK
     Dates: start: 20100905, end: 20100906
  8. THYMOGLOBULIN [Suspect]
     Indication: BONE MARROW CONDITIONING REGIMEN
     Dosage: 37.5 MG, QD
     Route: 042
     Dates: start: 20100809, end: 20100809
  9. BIAPENEM [Concomitant]
     Indication: INFECTION PROPHYLAXIS
     Dosage: UNK
     Dates: start: 20100910, end: 20100927
  10. TACROLIMUS [Concomitant]
     Indication: PROPHYLAXIS AGAINST GRAFT VERSUS HOST DISEASE
     Dosage: UNK
     Dates: start: 20100810, end: 20110111
  11. FLUCONAZOLE [Concomitant]
     Indication: INFECTION PROPHYLAXIS
     Dosage: UNK
     Dates: start: 20100804
  12. VORICONAZOLE [Concomitant]
     Indication: INFECTION PROPHYLAXIS
     Dosage: UNK
     Dates: start: 20100911, end: 20101022
  13. TOTAL BODY IRRADIATION [Concomitant]
     Indication: TRANSPLANT
     Dosage: UNK
     Dates: start: 20100807, end: 20100808
  14. FILGRASTIM [Concomitant]
     Indication: INFECTION PROPHYLAXIS
     Dosage: UNK
     Dates: start: 20100816
  15. ACYCLOVIR [Concomitant]
     Indication: INFECTION PROPHYLAXIS
     Dosage: UNK
     Dates: start: 20100804
  16. POLYMYXIN B SULFATE [Concomitant]
     Indication: INFECTION PROPHYLAXIS
     Dosage: UNK
     Dates: start: 20100804

REACTIONS (8)
  - EPSTEIN-BARR VIRUS INFECTION [None]
  - LUNG DISORDER [None]
  - PYREXIA [None]
  - PERICARDIAL EFFUSION [None]
  - NEUROBLASTOMA RECURRENT [None]
  - ENGRAFT FAILURE [None]
  - BACTERIAL INFECTION [None]
  - INTERSTITIAL LUNG DISEASE [None]
